FAERS Safety Report 21396638 (Version 2)
Quarter: 2022Q4

REPORT INFORMATION
  Report Type: Report from Study
  Country: GB (occurrence: GB)
  Receive Date: 20220930
  Receipt Date: 20221011
  Transmission Date: 20230113
  Serious: Yes (Death, Other)
  Sender: FDA-Public Use
  Company Number: GB-TAKEDA-2022TUS069330

PATIENT
  Sex: Female

DRUGS (1)
  1. BRIGATINIB [Suspect]
     Active Substance: BRIGATINIB
     Indication: Lung adenocarcinoma stage IV
     Dosage: UNK
     Route: 065
     Dates: start: 20171031, end: 20180517

REACTIONS (1)
  - Lung adenocarcinoma stage IV [Fatal]

NARRATIVE: CASE EVENT DATE: 20180403
